FAERS Safety Report 7659987-6 (Version None)
Quarter: 2011Q3

REPORT INFORMATION
  Report Type: 
  Country: None (occurrence: None)
  Receive Date: 20110805
  Receipt Date: 20110727
  Transmission Date: 20111222
  Serious: Yes (Other)
  Sender: FDA-Public Use
  Company Number: JP-BRISTOL-MYERS SQUIBB COMPANY-15935737

PATIENT
  Age: 5 Decade
  Sex: Female
  Weight: 45 kg

DRUGS (8)
  1. PARAPLATIN [Suspect]
     Dates: start: 20060601
  2. WARFARIN SODIUM [Interacting]
     Dosage: FIRST INTERRUPTED DAY 4 AND 5 AGAIN DOSE INCREASD FROM 1 MG TO 1.5 MG TABLET IN ALTERNATE DAYS.
     Route: 048
  3. DIGOXIN [Concomitant]
     Dosage: 1 TABLET
  4. VERAPAMIL HCL [Concomitant]
     Dosage: 3 TABLETS
  5. BUCOLOME [Concomitant]
     Dosage: 1 TABLET
  6. DOCETAXEL [Interacting]
     Dosage: INTER ON JUN2006.
     Dates: start: 20060601
  7. SPIRONOLACTONE [Concomitant]
     Dosage: 1 TABLET
  8. VALSARTAN [Concomitant]
     Dosage: 0.5 TABLETS

REACTIONS (4)
  - PALPITATIONS [None]
  - OEDEMA PERIPHERAL [None]
  - WHITE BLOOD CELL COUNT DECREASED [None]
  - PROTHROMBIN TIME RATIO INCREASED [None]
